FAERS Safety Report 9590051 (Version 1)
Quarter: 2013Q4

REPORT INFORMATION
  Report Type: Spontaneous
  Country: US (occurrence: US)
  Receive Date: 20131003
  Receipt Date: 20131003
  Transmission Date: 20140711
  Serious: No
  Sender: FDA-Public Use
  Company Number: US-AMGEN-USASP2012074485

PATIENT
  Age: 56 Year
  Sex: Male
  Weight: 135.15 kg

DRUGS (9)
  1. ENBREL [Suspect]
     Indication: PSORIASIS
     Dosage: 25 MG, 2 TIMES/WK
     Route: 058
  2. ENBREL [Suspect]
     Indication: PSORIATIC ARTHROPATHY
  3. ONGLYZA [Concomitant]
     Dosage: 2.5 MG, UNK
  4. CENTRUM                            /02217401/ [Concomitant]
     Dosage: UNK
  5. LANTUS [Concomitant]
     Dosage: 100 ML, UNK
  6. METFORMIN [Concomitant]
     Dosage: 500 MG, UNK
  7. SYMBICORT [Concomitant]
     Dosage: UNK
  8. ASA [Concomitant]
     Dosage: 81 MG, UNK
  9. NAPROXEN DELAYED RELEASE [Concomitant]
     Dosage: 375 MG, UNK

REACTIONS (2)
  - Increased upper airway secretion [Unknown]
  - Sinusitis [Unknown]
